FAERS Safety Report 15673831 (Version 12)
Quarter: 2021Q3

REPORT INFORMATION
  Report Type: Spontaneous
  Country: US (occurrence: US)
  Receive Date: 20181129
  Receipt Date: 20210811
  Transmission Date: 20211014
  Serious: Yes (Other)
  Sender: FDA-Public Use
  Company Number: US-PFIZER INC-2018445958

PATIENT
  Age: 62 Year
  Sex: Male

DRUGS (6)
  1. LYRICA [Suspect]
     Active Substance: PREGABALIN
     Dosage: 100 MG
  2. LYRICA [Suspect]
     Active Substance: PREGABALIN
     Dosage: 3 DF, DAILY (ONE PILL LESS EACH DAY)
     Route: 048
  3. LYRICA [Suspect]
     Active Substance: PREGABALIN
     Dosage: 100 MG, 4X/DAY (TAKE 1 CAPSULE BY MOUTH 4 TIMES DAILY)
     Route: 048
  4. LYRICA [Suspect]
     Active Substance: PREGABALIN
     Dosage: 100 MG, 4X/DAY
     Route: 048
  5. LYRICA [Suspect]
     Active Substance: PREGABALIN
     Dosage: 150 MG
  6. LYRICA [Suspect]
     Active Substance: PREGABALIN
     Dosage: 1 DF, 2X/DAY (2 A DAY; ONE IN THE MORNING AND ONE AT NIGHT)
     Route: 048

REACTIONS (4)
  - Seizure [Unknown]
  - Joint range of motion decreased [Unknown]
  - Road traffic accident [Unknown]
  - Intentional product use issue [Unknown]
